FAERS Safety Report 6196375-6 (Version None)
Quarter: 2009Q2

REPORT INFORMATION
  Report Type: 
  Country: None (occurrence: None)
  Receive Date: 20090520
  Receipt Date: 20090515
  Transmission Date: 20091009
  Serious: Yes (Hospitalization)
  Sender: FDA-Public Use
  Company Number: AU-BRISTOL-MYERS SQUIBB COMPANY-14479968

PATIENT
  Age: 61 Year
  Sex: Female
  Weight: 97 kg

DRUGS (9)
  1. BLINDED: BRIVANIB ALANINATE [Suspect]
     Indication: COLORECTAL CANCER METASTATIC
     Dosage: INITIATED ON 29-DEC-2008.
     Route: 048
     Dates: start: 20090119
  2. CETUXIMAB [Suspect]
     Indication: COLORECTAL CANCER METASTATIC
     Dosage: INITIATED ON 29-DEC-2008 CETUXIMAB(CHIMERIC ANTI-EGFR MAB)
     Route: 042
     Dates: start: 20090119, end: 20090119
  3. BLINDED: PLACEBO [Suspect]
     Indication: COLORECTAL CANCER METASTATIC
     Dosage: INITIATED ON 29-DEC-2009
     Route: 048
     Dates: start: 20090119
  4. MAXOLON [Suspect]
     Indication: NAUSEA
     Route: 042
     Dates: start: 20061101
  5. KARVEZIDE [Concomitant]
     Indication: HYPERTENSION
     Dates: start: 20061101
  6. LIPITOR [Concomitant]
     Indication: BLOOD CHOLESTEROL INCREASED
     Dates: start: 20000101
  7. NEXIUM [Concomitant]
     Indication: GASTROOESOPHAGEAL REFLUX DISEASE
     Dates: start: 20061101
  8. DIAFORMIN [Concomitant]
     Indication: TYPE 2 DIABETES MELLITUS
     Dates: start: 20040101
  9. FENTANYL [Concomitant]
     Indication: BACK PAIN
     Dates: start: 20081117

REACTIONS (1)
  - EXTRAPYRAMIDAL DISORDER [None]
